FAERS Safety Report 8825929 (Version 1)
Quarter: 2012Q4

REPORT INFORMATION
  Report Type: 
  Country: US (occurrence: US)
  Receive Date: 20121005
  Receipt Date: 20121005
  Transmission Date: 20130627
  Serious: No
  Sender: FDA-Public Use
  Company Number: US-BAYER-2012-103876

PATIENT
  Sex: Female

DRUGS (1)
  1. MIRENA [Suspect]
     Indication: CONTRACEPTION
     Dosage: 20 mcg/24hr, UNK
     Route: 015
     Dates: start: 20070913, end: 20121002

REACTIONS (8)
  - Swelling [None]
  - Discomfort [None]
  - Mood swings [None]
  - Peripheral coldness [None]
  - Hyperhidrosis [None]
  - Musculoskeletal pain [None]
  - Hypertrichosis [None]
  - Amenorrhoea [None]
